FAERS Safety Report 4520691-4 (Version None)
Quarter: 2004Q4

REPORT INFORMATION
  Report Type: 
  Country: None (occurrence: None)
  Receive Date: 20041207
  Receipt Date: 20041111
  Transmission Date: 20050328
  Serious: Yes (Hospitalization)
  Sender: FDA-Public Use
  Company Number: DE-MERCK-0411DEU00246

PATIENT
  Age: 73 Year
  Sex: Female
  Weight: 78 kg

DRUGS (8)
  1. ZETIA [Suspect]
     Indication: HYPERLIPIDAEMIA
     Route: 048
     Dates: start: 20040419, end: 20041102
  2. ZETIA [Suspect]
     Indication: CORONARY ARTERY DISEASE
     Route: 048
     Dates: start: 20040419, end: 20041102
  3. ASPIRIN [Concomitant]
     Route: 048
     Dates: start: 19850101
  4. MOLSIDOMINE [Concomitant]
     Route: 065
     Dates: start: 19990101
  5. PREDNISONE [Concomitant]
     Indication: MUSCULOSKELETAL PAIN
     Route: 048
     Dates: start: 19900101
  6. BISOPROLOL [Concomitant]
     Route: 065
     Dates: start: 20010101
  7. LISINOPRIL [Concomitant]
     Route: 065
     Dates: start: 20010101
  8. LEFLUNOMIDE [Concomitant]
     Route: 065
     Dates: start: 20020101

REACTIONS (2)
  - ABDOMINAL PAIN UPPER [None]
  - FLANK PAIN [None]
